FAERS Safety Report 4430991-4 (Version None)
Quarter: 2004Q3

REPORT INFORMATION
  Report Type: 
  Country: None (occurrence: None)
  Receive Date: 20040824
  Receipt Date: 20040813
  Transmission Date: 20050211
  Serious: Yes (Death)
  Sender: FDA-Public Use
  Company Number: GB-JNJFOC-20040806925

PATIENT
  Sex: Male

DRUGS (7)
  1. REMICADE [Suspect]
     Indication: RHEUMATOID ARTHRITIS
     Route: 042
  2. METHOTREXATE [Concomitant]
  3. MOBIC [Concomitant]
  4. FOLIC ACID [Concomitant]
  5. CODYDRAMOL [Concomitant]
  6. CODYDRAMOL [Concomitant]
  7. PREDNISOLONE [Concomitant]

REACTIONS (1)
  - DEATH [None]
